FAERS Safety Report 9303586 (Version 1)
Quarter: 2013Q2

REPORT INFORMATION
  Report Type: Report from Study
  Country: AR (occurrence: AR)
  Receive Date: 20130522
  Receipt Date: 20130522
  Transmission Date: 20140414
  Serious: Yes (Hospitalization, Other)
  Sender: FDA-Public Use
  Company Number: PHHY2013AR051220

PATIENT
  Sex: Female

DRUGS (1)
  1. EXFORGE [Suspect]
     Indication: HYPERTENSION
     Dosage: 1 DF, (320 MG VALS/ 5 MG AMLO) DAILY
     Route: 048

REACTIONS (3)
  - Cardiac failure [Recovering/Resolving]
  - Fall [Not Recovered/Not Resolved]
  - Joint dislocation [Not Recovered/Not Resolved]
